FAERS Safety Report 21126810 (Version 1)
Quarter: 2022Q3

REPORT INFORMATION
  Report Type: Spontaneous
  Country: US (occurrence: US)
  Receive Date: 20220725
  Receipt Date: 20220725
  Transmission Date: 20221026
  Serious: Yes (Other)
  Sender: FDA-Public Use
  Company Number: US-BAYER-2022A103273

PATIENT
  Age: 62 Year
  Sex: Female

DRUGS (3)
  1. GADAVIST [Suspect]
     Active Substance: GADOBUTROL
     Indication: Magnetic resonance imaging head
     Dosage: UNK UNK, ONCE
     Route: 042
     Dates: start: 20220720, end: 20220720
  2. GADAVIST [Suspect]
     Active Substance: GADOBUTROL
     Indication: Ataxia
  3. GADAVIST [Suspect]
     Active Substance: GADOBUTROL
     Indication: Dizziness

REACTIONS (5)
  - Loss of consciousness [None]
  - Nausea [None]
  - Foaming at mouth [None]
  - Urticaria [None]
  - Erythema [None]

NARRATIVE: CASE EVENT DATE: 20220720
